FAERS Safety Report 24916487 (Version 2)
Quarter: 2025Q1

REPORT INFORMATION
  Report Type: Spontaneous
  Country: US (occurrence: US)
  Receive Date: 20250203
  Receipt Date: 20250206
  Transmission Date: 20250408
  Serious: Yes (Hospitalization, Other)
  Sender: TERSERA THERAPEUTICS
  Company Number: US-TERSERA THERAPEUTICS LLC-2025TRS000345

PATIENT

DRUGS (4)
  1. PRIALT [Suspect]
     Active Substance: ZICONOTIDE ACETATE
     Indication: Product used for unknown indication
     Route: 037
  2. PRIALT [Suspect]
     Active Substance: ZICONOTIDE ACETATE
     Route: 037
  3. PRIALT [Suspect]
     Active Substance: ZICONOTIDE ACETATE
     Route: 037
  4. BACLOFEN [Suspect]
     Active Substance: BACLOFEN
     Indication: Product used for unknown indication
     Route: 037

REACTIONS (16)
  - Myocardial infarction [Unknown]
  - Urinary retention [Unknown]
  - Hallucination, visual [Not Recovered/Not Resolved]
  - Dehydration [Unknown]
  - Urinary tract infection [Unknown]
  - Delusion of reference [Unknown]
  - Musculoskeletal disorder [Unknown]
  - Substance-induced psychotic disorder [Not Recovered/Not Resolved]
  - Diarrhoea [Unknown]
  - Vomiting [Unknown]
  - Speech disorder [Not Recovered/Not Resolved]
  - Anxiety [Not Recovered/Not Resolved]
  - Overdose [Unknown]
  - Product use issue [Unknown]
  - Off label use [Unknown]
  - Device issue [Unknown]

NARRATIVE: CASE EVENT DATE: 20250101
